FAERS Safety Report 6210728-9 (Version None)
Quarter: 2009Q2

REPORT INFORMATION
  Report Type: 
  Country: None (occurrence: None)
  Receive Date: 20090601
  Receipt Date: 20090520
  Transmission Date: 20091009
  Serious: Yes (Hospitalization)
  Sender: FDA-Public Use
  Company Number: GB-PFIZER INC-2009216203

PATIENT
  Age: 36 Year

DRUGS (1)
  1. SULFASALAZINE [Suspect]
     Route: 048

REACTIONS (1)
  - NEUTROPENIC SEPSIS [None]
